FAERS Safety Report 10716416 (Version 1)
Quarter: 2015Q1

REPORT INFORMATION
  Report Type: Spontaneous
  Country: US (occurrence: None)
  Receive Date: 20150115
  Receipt Date: 20150115
  Transmission Date: 20150721
  Serious: Yes (Other)
  Sender: FDA-Public Use
  Company Number: None

PATIENT
  Age: 57 Year
  Sex: Female

DRUGS (2)
  1. TRILEPTAL [Suspect]
     Active Substance: OXCARBAZEPINE
  2. NEURONTIN [Suspect]
     Active Substance: GABAPENTIN

REACTIONS (3)
  - Product substitution issue [None]
  - Glossopharyngeal neuralgia [None]
  - Condition aggravated [None]
